FAERS Safety Report 11139285 (Version 1)
Quarter: 2015Q2

REPORT INFORMATION
  Report Type: Spontaneous
  Country: GB (occurrence: None)
  Receive Date: 20150522
  Receipt Date: 20150522
  Transmission Date: 20150821
  Serious: Yes (Other)
  Sender: FDA-Public Use
  Company Number: 20151597

PATIENT
  Age: 83 Year
  Sex: Female

DRUGS (2)
  1. SULPHASALAZINE [Concomitant]
     Active Substance: SULFASALAZINE
  2. METHOTREXATE (METHOTREXATE) [Suspect]
     Active Substance: METHOTREXATE
     Dosage: 15 MILLIGRAM IN 1 WEEK

REACTIONS (12)
  - Pyrexia [None]
  - Platelet count decreased [None]
  - Biliary colic [None]
  - Contraindicated drug administered [None]
  - Vomiting [None]
  - Bone marrow failure [None]
  - Abdominal pain [None]
  - Liver function test abnormal [None]
  - Lower respiratory tract infection [None]
  - Pancytopenia [None]
  - Urinary tract infection [None]
  - Sepsis [None]

NARRATIVE: CASE EVENT DATE: 20140627
